FAERS Safety Report 24288776 (Version 1)
Quarter: 2024Q3

REPORT INFORMATION
  Report Type: Other
  Country: DE (occurrence: DE)
  Receive Date: 20240906
  Receipt Date: 20240906
  Transmission Date: 20241016
  Serious: Yes (Other)
  Sender: STRIDES
  Company Number: DE-UCBSA-2024041560

PATIENT
  Age: 24 Year
  Sex: Female

DRUGS (17)
  1. PHENOBARBITAL [Suspect]
     Active Substance: PHENOBARBITAL
     Indication: Lennox-Gastaut syndrome
     Dosage: 200 MILLIGRAM/DAY
     Route: 065
  2. PHENOBARBITAL [Suspect]
     Active Substance: PHENOBARBITAL
     Indication: Status epilepticus
     Dosage: ADDITIONAL DOSES OF PB
     Route: 065
  3. PHENOBARBITAL [Suspect]
     Active Substance: PHENOBARBITAL
     Indication: Tuberous sclerosis complex
  4. TOPIRAMATE [Suspect]
     Active Substance: TOPIRAMATE
     Indication: Lennox-Gastaut syndrome
     Dosage: 900 MILLIGRAM/DAY
     Route: 065
  5. TOPIRAMATE [Suspect]
     Active Substance: TOPIRAMATE
     Indication: Tuberous sclerosis complex
  6. TOPIRAMATE [Suspect]
     Active Substance: TOPIRAMATE
     Indication: Status epilepticus
  7. FENFLURAMINE HYDROCHLORIDE [Suspect]
     Active Substance: FENFLURAMINE HYDROCHLORIDE
     Indication: Status epilepticus
     Dosage: FFA DOSAGE WAS INCREASED TO A PEAK DOSE OF 42 MG/DAY WITHIN 8 DAYS, WHICH EQUALLED AROUND 0,7MG/KG
  8. FENFLURAMINE HYDROCHLORIDE [Suspect]
     Active Substance: FENFLURAMINE HYDROCHLORIDE
     Indication: Off label use
     Dosage: UNK
     Dates: start: 2022
  9. FENFLURAMINE HYDROCHLORIDE [Suspect]
     Active Substance: FENFLURAMINE HYDROCHLORIDE
     Indication: Lennox-Gastaut syndrome
     Dosage: 21 MILLIGRAM/DAY
  10. FENFLURAMINE HYDROCHLORIDE [Suspect]
     Active Substance: FENFLURAMINE HYDROCHLORIDE
     Indication: Tuberous sclerosis complex
  11. EVEROLIMUS [Suspect]
     Active Substance: EVEROLIMUS
     Indication: Lennox-Gastaut syndrome
     Dosage: 5 MILLIGRAM
     Route: 065
  12. EVEROLIMUS [Suspect]
     Active Substance: EVEROLIMUS
     Indication: Tuberous sclerosis complex
  13. EVEROLIMUS [Suspect]
     Active Substance: EVEROLIMUS
     Indication: Seizure
  14. LACOSAMIDE [Suspect]
     Active Substance: LACOSAMIDE
     Indication: Off label use
     Dosage: ADDITIONAL DOSES OF LCM
     Route: 065
  15. LACOSAMIDE [Suspect]
     Active Substance: LACOSAMIDE
     Indication: Lennox-Gastaut syndrome
     Dosage: 400 MILLIGRAM/DAY
     Route: 065
  16. LACOSAMIDE [Suspect]
     Active Substance: LACOSAMIDE
     Indication: Tuberous sclerosis complex
  17. LACOSAMIDE [Suspect]
     Active Substance: LACOSAMIDE
     Indication: Seizure

REACTIONS (5)
  - Seizure [Unknown]
  - Pyrexia [None]
  - Multiple-drug resistance [Unknown]
  - Prescribed overdose [Unknown]
  - Off label use [Unknown]
